FAERS Safety Report 8959004 (Version 1)
Quarter: 2012Q4

REPORT INFORMATION
  Report Type: 
  Country: MX (occurrence: MX)
  Receive Date: 20121212
  Receipt Date: 20121212
  Transmission Date: 20130627
  Serious: Yes (Other)
  Sender: FDA-Public Use
  Company Number: PHHY2012MX113700

PATIENT
  Age: 52 Year
  Sex: Female

DRUGS (2)
  1. ONBREZ [Suspect]
     Indication: BRONCHIAL DISORDER
     Dosage: 300 ug, QD
     Dates: start: 2011, end: 201209
  2. ONBREZ [Suspect]
     Dosage: 300 ug, PRN
     Dates: start: 20121107

REACTIONS (5)
  - Asphyxia [Recovered/Resolved]
  - Agitation [Recovered/Resolved]
  - Increased upper airway secretion [Recovered/Resolved]
  - Fatigue [Recovered/Resolved]
  - Pain [Unknown]
